FAERS Safety Report 13492840 (Version 5)
Quarter: 2017Q3

REPORT INFORMATION
  Report Type: Spontaneous
  Country: US (occurrence: US)
  Receive Date: 20170427
  Receipt Date: 20170926
  Transmission Date: 20171127
  Serious: Yes (Congenital Anomaly, Other)
  Sender: FDA-Public Use
  Company Number: PHEH2017US012186

PATIENT
  Sex: Male

DRUGS (1)
  1. ZOFRAN [Suspect]
     Active Substance: ONDANSETRON HYDROCHLORIDE
     Indication: FOETAL EXPOSURE DURING PREGNANCY
     Dosage: MOTHER^S DOSE FREQUENCY: PRN
     Route: 064

REACTIONS (13)
  - Attention deficit/hyperactivity disorder [Unknown]
  - Upper respiratory tract infection [Unknown]
  - Bronchitis [Unknown]
  - Pain [Unknown]
  - Foetal exposure during pregnancy [Unknown]
  - Injury [Unknown]
  - Talipes [Unknown]
  - Conjunctivitis allergic [Unknown]
  - Discomfort [Unknown]
  - Pyrexia [Unknown]
  - Tibial torsion [Unknown]
  - Tinea pedis [Unknown]
  - Gait disturbance [Unknown]
